FAERS Safety Report 6837929-0 (Version None)
Quarter: 2010Q3

REPORT INFORMATION
  Report Type: 
  Country: None (occurrence: None)
  Receive Date: 20100713
  Receipt Date: 20070524
  Transmission Date: 20110219
  Serious: No
  Sender: FDA-Public Use
  Company Number: US-PFIZER INC-2007041160

PATIENT
  Sex: Female
  Weight: 83.9 kg

DRUGS (5)
  1. CHANTIX [Suspect]
     Indication: SMOKING CESSATION THERAPY
     Route: 048
     Dates: start: 20070502
  2. HERBAL PREPARATION [Suspect]
     Indication: NAUSEA
     Dates: start: 20070501
  3. ALL OTHER THERAPEUTIC PRODUCTS [Concomitant]
  4. PROZAC [Concomitant]
  5. VICODIN [Concomitant]

REACTIONS (6)
  - ABDOMINAL DISCOMFORT [None]
  - ADVERSE DRUG REACTION [None]
  - DIARRHOEA [None]
  - FLATULENCE [None]
  - INSOMNIA [None]
  - NAUSEA [None]
